FAERS Safety Report 5386879-8 (Version None)
Quarter: 2007Q3

REPORT INFORMATION
  Report Type: 
  Country: None (occurrence: None)
  Receive Date: 20070713
  Receipt Date: 20070703
  Transmission Date: 20080115
  Serious: Yes (Other)
  Sender: FDA-Public Use
  Company Number: US-PFIZER INC-2007045777

PATIENT
  Sex: Male
  Weight: 90.909 kg

DRUGS (7)
  1. CHANTIX [Suspect]
     Indication: SMOKING CESSATION THERAPY
  2. ALL OTHER THERAPEUTIC PRODUCTS [Suspect]
     Route: 031
  3. WARFARIN SODIUM [Concomitant]
  4. VALSARTAN [Concomitant]
     Indication: HYPERTENSION
  5. LIPITOR [Concomitant]
  6. PLETAL [Concomitant]
  7. DRUG, UNSPECIFIED [Concomitant]

REACTIONS (6)
  - ADVERSE DRUG REACTION [None]
  - DIPLOPIA [None]
  - INFECTION [None]
  - OPTIC NERVE DISORDER [None]
  - STRABISMUS [None]
  - TRANSIENT ISCHAEMIC ATTACK [None]
